FAERS Safety Report 19815900 (Version 2)
Quarter: 2021Q3

REPORT INFORMATION
  Report Type: Report from Study
  Country: CO (occurrence: CO)
  Receive Date: 20210909
  Receipt Date: 20210916
  Transmission Date: 20211014
  Serious: Yes (Hospitalization, Other)
  Sender: FDA-Public Use
  Company Number: CO-TAKEDA-CO201942846

PATIENT
  Age: 3 Year
  Sex: Male
  Weight: 23 kg

DRUGS (3)
  1. IDURSULFASE [Suspect]
     Active Substance: IDURSULFASE
     Dosage: 12 MILLIGRAM, 1/WEEK
     Route: 042
     Dates: start: 20191109
  2. IDURSULFASE [Suspect]
     Active Substance: IDURSULFASE
     Indication: MUCOPOLYSACCHARIDOSIS II
     Dosage: UNK
     Route: 050
     Dates: start: 20191109
  3. IDURSULFASE [Suspect]
     Active Substance: IDURSULFASE
     Dosage: 10.75 MILLIGRAM
     Route: 065

REACTIONS (6)
  - Weight increased [Unknown]
  - Adverse event [Unknown]
  - Seizure [Recovered/Resolved]
  - Dose calculation error [Unknown]
  - Body height increased [Unknown]
  - Pyrexia [Recovering/Resolving]

NARRATIVE: CASE EVENT DATE: 20191206
